FAERS Safety Report 14585781 (Version 1)
Quarter: 2018Q1

REPORT INFORMATION
  Report Type: Spontaneous
  Country: US (occurrence: US)
  Receive Date: 20180301
  Receipt Date: 20180301
  Transmission Date: 20180509
  Serious: No
  Sender: FDA-Public Use
  Company Number: US-TEVA-2018-US-863622

PATIENT
  Sex: Male

DRUGS (1)
  1. NALTREXONE HYDROCHLORIDE TABLET 50MG [Suspect]
     Active Substance: NALTREXONE HYDROCHLORIDE
     Indication: DEPENDENCE

REACTIONS (1)
  - Drug screen false positive [Unknown]
